FAERS Safety Report 5321129-X (Version None)
Quarter: 2007Q2

REPORT INFORMATION
  Report Type: 
  Country: None (occurrence: None)
  Receive Date: 20070510
  Receipt Date: 20070503
  Transmission Date: 20071010
  Serious: Yes (Death, Life-Threatening)
  Sender: FDA-Public Use
  Company Number: CA-NOVOPROD-263279

PATIENT
  Sex: Female
  Weight: 80 kg

DRUGS (21)
  1. NOVOSEVEN [Suspect]
     Indication: TRAUMATIC HAEMORRHAGE
     Dosage: 3 DOSES
     Route: 042
     Dates: start: 20070314, end: 20070314
  2. FENTANYL [Concomitant]
     Indication: PAIN PROPHYLAXIS
     Dosage: 25 MG, UNK
     Route: 042
     Dates: start: 20070314, end: 20070314
  3. VERSED [Concomitant]
     Indication: SEDATION
     Dosage: 5 MG, UNK
     Route: 042
     Dates: start: 20070314, end: 20070314
  4. NARCAN [Concomitant]
     Dosage: .2 MG, UNK
     Route: 042
     Dates: start: 20070314, end: 20070314
  5. SUCCINYLCHOLIN [Concomitant]
     Dosage: 100 UNK, UNK
     Route: 042
     Dates: start: 20070314, end: 20070314
  6. ROCURONIUM BROMIDE [Concomitant]
     Indication: INTUBATION
     Dosage: 50 UNK, UNK
     Route: 042
     Dates: start: 20070314, end: 20070314
  7. LASIX [Concomitant]
     Indication: OLIGURIA
     Dosage: 20 MG, UNK
     Route: 042
     Dates: start: 20070314, end: 20070314
  8. MILRINONE [Concomitant]
     Dosage: 0.125 UG/KG/MIN
     Route: 042
     Dates: start: 20070314
  9. LEVOPHED [Concomitant]
     Dosage: 20 UG/MIN
     Route: 042
     Dates: start: 20070314
  10. EPINEPHRINE [Concomitant]
     Dosage: 20 UG/MIN
     Route: 042
     Dates: start: 20070314
  11. VASOPRESSIN [Concomitant]
     Dosage: 4 U/HR
     Route: 042
     Dates: start: 20070314
  12. RANITIDINE [Concomitant]
     Dosage: 150 MG, UNK
     Route: 048
     Dates: start: 20070315
  13. VENTOLINE                          /00139501/ [Concomitant]
     Dosage: 100 MEQ, UNK
     Route: 055
     Dates: start: 20070315
  14. ATROVENT [Concomitant]
     Dosage: 20 MEQ, UNK
     Route: 055
     Dates: start: 20070315
  15. DIGOXIN [Concomitant]
     Dosage: .125 MG, UNK
     Route: 042
  16. CEFTRIAXONE [Concomitant]
     Dosage: 1 G, UNK
     Route: 042
     Dates: start: 20070315
  17. AZITHROMYCIN [Concomitant]
     Dosage: 500 MG, UNK
     Route: 042
     Dates: start: 20070316
  18. DALTEPARIN SODIUM [Concomitant]
     Dosage: 5000 U, UNK
     Route: 058
     Dates: start: 20040317
  19. DECADRON [Concomitant]
     Dosage: 4 MG, UNK
     Route: 042
     Dates: start: 20040316
  20. BICARBONATE [Concomitant]
     Dosage: 1 AMP
     Route: 042
     Dates: start: 20070319
  21. MAGNESUM [Concomitant]
     Dosage: 2 G, UNK
     Route: 042
     Dates: start: 20070319

REACTIONS (1)
  - CARDIAC ARREST [None]
